FAERS Safety Report 6825187-2 (Version None)
Quarter: 2010Q3

REPORT INFORMATION
  Report Type: 
  Country: None (occurrence: None)
  Receive Date: 20100708
  Receipt Date: 20070109
  Transmission Date: 20110219
  Serious: No
  Sender: FDA-Public Use
  Company Number: US-PFIZER INC-2007003135

PATIENT
  Sex: Female
  Weight: 144.24 kg

DRUGS (3)
  1. CHANTIX [Suspect]
     Indication: SMOKING CESSATION THERAPY
     Dates: start: 20061223, end: 20070104
  2. FLEXERIL [Concomitant]
  3. ANTI-ASTHMATICS [Concomitant]
     Indication: ASTHMA

REACTIONS (2)
  - PSYCHOMOTOR HYPERACTIVITY [None]
  - TOBACCO USER [None]
